FAERS Safety Report 8832179 (Version 1)
Quarter: 2012Q4

REPORT INFORMATION
  Report Type: 
  Country: US (occurrence: US)
  Receive Date: 20121009
  Receipt Date: 20121009
  Transmission Date: 20130627
  Serious: No
  Sender: FDA-Public Use
  Company Number: US-009507513-1209USA010693

PATIENT

DRUGS (3)
  1. ZOCOR [Suspect]
     Dosage: UNK
     Route: 048
  2. VITAMINS (UNSPECIFIED) [Concomitant]
  3. CALCIUM (UNSPECIFIED) [Concomitant]

REACTIONS (1)
  - Hair colour changes [Not Recovered/Not Resolved]
